FAERS Safety Report 8965191 (Version 1)
Quarter: 2012Q4

REPORT INFORMATION
  Report Type: 
  Country: IT (occurrence: IT)
  Receive Date: 20121213
  Receipt Date: 20121213
  Transmission Date: 20130627
  Serious: Yes (Hospitalization)
  Sender: FDA-Public Use
  Company Number: IT-ASTRAZENECA-2012SE91270

PATIENT
  Age: 23311 Day
  Sex: Male

DRUGS (7)
  1. BRILIQUE [Suspect]
     Indication: ACUTE CORONARY SYNDROME
     Route: 048
     Dates: start: 20121128, end: 20121128
  2. OMEPRAZOLE [Concomitant]
  3. SIMVASTATIN [Concomitant]
  4. ZESTRIL [Concomitant]
  5. CARDIOASPIRIN (ACETYLSALICYLIC ACID) [Concomitant]
     Dosage: 100 mg gastroresistant tablets
  6. CIPRALEX [Concomitant]
  7. MONOKET (ISOSORBIDE) [Concomitant]

REACTIONS (1)
  - Dermatitis exfoliative [Recovering/Resolving]
